FAERS Safety Report 23515099 (Version 2)
Quarter: 2024Q4

REPORT INFORMATION
  Report Type: Spontaneous
  Country: BR (occurrence: BR)
  Receive Date: 20240213
  Receipt Date: 20241105
  Transmission Date: 20250115
  Serious: Yes (Hospitalization, Other)
  Sender: JOHNSON AND JOHNSON
  Company Number: BR-BAYER-2024A023379

PATIENT
  Sex: Male

DRUGS (2)
  1. XARELTO [Suspect]
     Active Substance: RIVAROXABAN
     Indication: Pulmonary embolism
     Dosage: 15 MG, BID
     Route: 048
     Dates: start: 2017
  2. ENOXAPARIN SODIUM [Concomitant]
     Active Substance: ENOXAPARIN SODIUM
     Indication: Thrombosis prophylaxis
     Route: 065

REACTIONS (8)
  - Pulmonary embolism [Recovered/Resolved]
  - Haemoglobin decreased [Unknown]
  - Haemorrhage [Unknown]
  - Immunodeficiency [Unknown]
  - Anal sphincterotomy [Unknown]
  - Haemorrhoid operation [Unknown]
  - Paraesthesia [Unknown]
  - Product dose omission issue [Unknown]

NARRATIVE: CASE EVENT DATE: 20231201
